FAERS Safety Report 5663668-8 (Version None)
Quarter: 2008Q1

REPORT INFORMATION
  Report Type: 
  Country: None (occurrence: None)
  Receive Date: 20080313
  Receipt Date: 20080303
  Transmission Date: 20080703
  Serious: Yes (Hospitalization, Disabling, Other)
  Sender: FDA-Public Use
  Company Number: US-GENENTECH-256713

PATIENT
  Sex: Female
  Weight: 58.2 kg

DRUGS (11)
  1. NUTROPIN [Suspect]
     Indication: RENAL FAILURE CHRONIC
     Dosage: 2.8 MG, QAM
     Route: 058
     Dates: start: 20070108, end: 20070809
  2. NEPHROCAPS [Concomitant]
     Indication: DRUG USE FOR UNKNOWN INDICATION
     Dosage: UNK, QD
     Route: 048
  3. ROCALTROL [Concomitant]
     Indication: HYPERPARATHYROIDISM
     Dosage: 1 A?G, QD
     Route: 048
  4. RENAGEL [Concomitant]
     Indication: HYPERPARATHYROIDISM
     Dosage: 1600 MG, TID
     Route: 048
  5. NIFEREX [Concomitant]
     Indication: DRUG USE FOR UNKNOWN INDICATION
     Dosage: 150 MG, QD
     Route: 048
  6. EPOGEN [Concomitant]
     Indication: DRUG USE FOR UNKNOWN INDICATION
     Dosage: 3500 UNIT, 2/WEEK
     Route: 058
  7. LIPITOR [Concomitant]
     Indication: HYPERCHOLESTEROLAEMIA
     Dosage: 10 MG, QD
     Route: 048
  8. COLACE [Concomitant]
     Indication: DRUG USE FOR UNKNOWN INDICATION
     Dosage: 100 MG, QD
     Route: 048
  9. BACTROBAN [Concomitant]
     Indication: DRUG USE FOR UNKNOWN INDICATION
     Dosage: UNK, QD
     Route: 061
  10. NIFEDIPINE [Concomitant]
     Indication: DRUG USE FOR UNKNOWN INDICATION
     Dosage: 10 MG, PRN
     Route: 060
  11. LOSCALCON [Concomitant]
     Indication: HYPERPARATHYROIDISM
     Dosage: 1200 MG, TID
     Route: 048

REACTIONS (1)
  - BENIGN INTRACRANIAL HYPERTENSION [None]
